FAERS Safety Report 13060508 (Version 2)
Quarter: 2016Q4

REPORT INFORMATION
  Report Type: Spontaneous
  Country: US (occurrence: US)
  Receive Date: 20161224
  Receipt Date: 20161229
  Transmission Date: 20170207
  Serious: Yes (Other)
  Sender: FDA-Public Use
  Company Number: US-AMGEN-USASP2016181066

PATIENT
  Sex: Female

DRUGS (2)
  1. NEULASTA [Suspect]
     Active Substance: PEGFILGRASTIM
     Indication: FEBRILE NEUTROPENIA
     Dosage: 0.6 MG, UNK
     Route: 065
  2. NEULASTA [Suspect]
     Active Substance: PEGFILGRASTIM
     Dosage: 0.6 MG, UNK
     Route: 065

REACTIONS (10)
  - Fatigue [Not Recovered/Not Resolved]
  - Adverse drug reaction [Not Recovered/Not Resolved]
  - Dyspnoea [Not Recovered/Not Resolved]
  - Nausea [Not Recovered/Not Resolved]
  - Neoplasm malignant [Not Recovered/Not Resolved]
  - Tremor [Not Recovered/Not Resolved]
  - Palpitations [Not Recovered/Not Resolved]
  - Chest pain [Not Recovered/Not Resolved]
  - Bone pain [Not Recovered/Not Resolved]
  - Eating disorder [Not Recovered/Not Resolved]

NARRATIVE: CASE EVENT DATE: 2016
